FAERS Safety Report 24944830 (Version 1)
Quarter: 2025Q1

REPORT INFORMATION
  Report Type: Spontaneous
  Country: US (occurrence: US)
  Receive Date: 20250208
  Receipt Date: 20250208
  Transmission Date: 20250409
  Serious: Yes (Other)
  Sender: ABBVIE
  Company Number: US-ABBVIE-6120214

PATIENT
  Sex: Female

DRUGS (3)
  1. REFRESH CELLUVISC [Suspect]
     Active Substance: CARBOXYMETHYLCELLULOSE SODIUM
     Indication: Dry eye
     Route: 047
  2. REFRESH OPTIVE [Suspect]
     Active Substance: CARBOXYMETHYLCELLULOSE SODIUM\GLYCERIN
     Indication: Dry eye
     Route: 047
  3. REFRESH P.M. [Suspect]
     Active Substance: MINERAL OIL\PETROLATUM
     Indication: Dry eye
     Route: 047

REACTIONS (7)
  - Cataract [Unknown]
  - Ocular rosacea [Unknown]
  - Meibomian gland dysfunction [Unknown]
  - Nephritis [Unknown]
  - Astigmatism [Unknown]
  - Cataract [Unknown]
  - Dry eye [Unknown]
